FAERS Safety Report 9097239 (Version 1)
Quarter: 2013Q1

REPORT INFORMATION
  Report Type: Spontaneous
  Country: US (occurrence: US)
  Receive Date: 20130212
  Receipt Date: 20130212
  Transmission Date: 20140127
  Serious: Yes (Other)
  Sender: FDA-Public Use
  Company Number: US-ROXANE LABORATORIES, INC.-2013-RO-00216RO

PATIENT
  Age: 53 Year
  Sex: Female

DRUGS (8)
  1. MERCAPTOPURINE [Suspect]
     Indication: CROHN^S DISEASE
     Dosage: 50 MG
  2. MERCAPTOPURINE [Suspect]
     Dosage: 75 MG
  3. MERCAPTOPURINE [Suspect]
     Dosage: 100 MG
  4. PREDNISONE [Suspect]
     Indication: CROHN^S DISEASE
  5. PREDNISONE [Suspect]
     Route: 048
  6. CIPROFLOXACIN [Suspect]
     Indication: CROHN^S DISEASE
  7. CIPROFLOXACIN [Suspect]
     Dosage: 500 MG
  8. ANTIBIOTIC [Suspect]
     Indication: TOOTH ABSCESS

REACTIONS (4)
  - Hepatotoxicity [Recovered/Resolved]
  - Crohn^s disease [Recovered/Resolved]
  - Diarrhoea [Unknown]
  - Liver function test abnormal [Unknown]
